FAERS Safety Report 20500292 (Version 1)
Quarter: 2022Q1

REPORT INFORMATION
  Report Type: Other
  Country: IT (occurrence: IT)
  Receive Date: 20220222
  Receipt Date: 20220222
  Transmission Date: 20220424
  Serious: Yes (Other)
  Sender: FDA-Public Use
  Company Number: None

PATIENT

DRUGS (6)
  1. ONCASPAR [Suspect]
     Active Substance: PEGASPARGASE
     Indication: Acute lymphocytic leukaemia
     Dosage: 1 DF
     Route: 042
     Dates: start: 20211216, end: 20211216
  2. DECADRON [Concomitant]
     Active Substance: DEXAMETHASONE
     Indication: Product used for unknown indication
     Dosage: UNK
     Route: 065
  3. TN UNSPECIFIED [Concomitant]
     Indication: Product used for unknown indication
     Dosage: UNK
     Route: 065
  4. MYCOSTATIN [Concomitant]
     Active Substance: NYSTATIN
     Indication: Product used for unknown indication
     Dosage: UNK
     Route: 065
  5. OMEPRAZOLE [Concomitant]
     Active Substance: OMEPRAZOLE
     Indication: Product used for unknown indication
     Dosage: UNK
     Route: 065
  6. ZOFRAN [Concomitant]
     Active Substance: ONDANSETRON HYDROCHLORIDE
     Indication: Product used for unknown indication
     Dosage: UNK
     Route: 065

REACTIONS (4)
  - Hypersensitivity [Recovering/Resolving]
  - Erythema [Recovering/Resolving]
  - Laryngeal oedema [Recovering/Resolving]
  - Hyperhidrosis [Recovering/Resolving]

NARRATIVE: CASE EVENT DATE: 20211216
